FAERS Safety Report 4524858-0 (Version None)
Quarter: 2004Q4

REPORT INFORMATION
  Report Type: 
  Country: None (occurrence: None)
  Receive Date: 20041117
  Receipt Date: 20031212
  Transmission Date: 20050328
  Serious: Yes (Other)
  Sender: FDA-Public Use
  Company Number: C2003-3289.01

PATIENT
  Age: 17 Year
  Sex: Female

DRUGS (2)
  1. CLOZAPINE [Suspect]
     Indication: MAJOR DEPRESSION
     Dosage: 25MG BID, ORAL
     Route: 048
     Dates: start: 20030823, end: 20031209
  2. CLOZAPINE [Suspect]
     Indication: MAJOR DEPRESSION
     Dosage: 100MG Q HS, ORAL
     Route: 048
     Dates: start: 20030823, end: 20031209

REACTIONS (3)
  - INFLUENZA LIKE ILLNESS [None]
  - LEUKOPENIA [None]
  - MALAISE [None]
